FAERS Safety Report 12327234 (Version 1)
Quarter: 2016Q2

REPORT INFORMATION
  Report Type: Spontaneous
  Country: US (occurrence: None)
  Receive Date: 20160502
  Receipt Date: 20160502
  Transmission Date: 20160815
  Serious: No
  Sender: FDA-Public Use
  Company Number: None

PATIENT
  Age: 39 Year
  Sex: Female

DRUGS (5)
  1. ALPRZOLAM [Concomitant]
  2. GILENYA [Suspect]
     Active Substance: FINGOLIMOD HYDROCHLORIDE
     Indication: MULTIPLE SCLEROSIS
     Dosage: 1 CAPSULE DAILY PO
     Route: 048
     Dates: start: 20150924
  3. HYDROCO/APAP [Concomitant]
     Active Substance: ACETAMINOPHEN\HYDROCODONE
  4. LYRICA [Concomitant]
     Active Substance: PREGABALIN
  5. REFIB [Concomitant]

REACTIONS (1)
  - Acne [None]

NARRATIVE: CASE EVENT DATE: 201601
